FAERS Safety Report 14901544 (Version 2)
Quarter: 2018Q2

REPORT INFORMATION
  Report Type: Spontaneous
  Country: US (occurrence: US)
  Receive Date: 20180516
  Receipt Date: 20180524
  Transmission Date: 20180711
  Serious: Yes (Death, Hospitalization)
  Sender: FDA-Public Use
  Company Number: US-BAUSCH-BL-2018-014116

PATIENT
  Age: 51 Year
  Sex: Male

DRUGS (6)
  1. FLUOROURACIL. [Suspect]
     Active Substance: FLUOROURACIL
     Indication: HEPATOCELLULAR CARCINOMA
     Route: 065
  2. CLINDAMYCIN. [Suspect]
     Active Substance: CLINDAMYCIN
     Indication: BACTERIAL INFECTION
     Route: 065
  3. ERYTHROMYCIN. [Suspect]
     Active Substance: ERYTHROMYCIN
     Indication: BACTERIAL INFECTION
     Route: 065
  4. ADRIAMYCIN [Suspect]
     Active Substance: DOXORUBICIN HYDROCHLORIDE
     Indication: HEPATOCELLULAR CARCINOMA
     Route: 065
  5. MOXALACTAM. [Suspect]
     Active Substance: MOXALACTAM
     Indication: BACTERIAL INFECTION
     Route: 065
  6. FERRITIN [Concomitant]
     Active Substance: FERRITIN
     Indication: PRODUCT USED FOR UNKNOWN INDICATION

REACTIONS (9)
  - Thrombophlebitis [Fatal]
  - Hypoglycaemia [Fatal]
  - Abdominal rigidity [Fatal]
  - Oliguria [Fatal]
  - Alpha haemolytic streptococcal infection [Fatal]
  - Bacteraemia [Fatal]
  - Hypotension [Fatal]
  - Hypothermia [Fatal]
  - Disseminated intravascular coagulation [Fatal]
